FAERS Safety Report 25826627 (Version 2)
Quarter: 2025Q3

REPORT INFORMATION
  Report Type: Report from Study
  Country: US (occurrence: US)
  Receive Date: 20250920
  Receipt Date: 20250923
  Transmission Date: 20251021
  Serious: No
  Sender: BRISTOL-MYERS SQUIBB COMPANY
  Company Number: US-BRISTOL-MYERS SQUIBB COMPANY-2025-129376

PATIENT
  Age: 83 Year
  Sex: Female
  Weight: 86.18 kg

DRUGS (6)
  1. ELIQUIS [Suspect]
     Active Substance: APIXABAN
     Indication: Thrombosis
     Dates: start: 20210216
  2. ELIQUIS [Suspect]
     Active Substance: APIXABAN
     Indication: Pneumonia
  3. CLONAZEPAM [Concomitant]
     Active Substance: CLONAZEPAM
     Indication: Product used for unknown indication
  4. VITAMIN D3 [Concomitant]
     Active Substance: CHOLECALCIFEROL
     Indication: Product used for unknown indication
  5. MIRALAX [Concomitant]
     Active Substance: POLYETHYLENE GLYCOL 3350
     Indication: Product used for unknown indication
  6. SYNTHROID [Concomitant]
     Active Substance: LEVOTHYROXINE SODIUM
     Indication: Thyroid disorder

REACTIONS (8)
  - Alopecia [Unknown]
  - Headache [Unknown]
  - Loose tooth [Unknown]
  - Oral disorder [Unknown]
  - Oral pain [Unknown]
  - Off label use [Unknown]
  - Gingival pain [Unknown]
  - Dental caries [Unknown]
